FAERS Safety Report 7556628-3 (Version None)
Quarter: 2011Q2

REPORT INFORMATION
  Report Type: 
  Country: None (occurrence: None)
  Receive Date: 20110616
  Receipt Date: 20110616
  Transmission Date: 20111010
  Serious: Yes (Hospitalization)
  Sender: FDA-Public Use
  Company Number: None

PATIENT
  Sex: Male
  Weight: 53 kg

DRUGS (22)
  1. MEGESTROL ACETATE [Concomitant]
  2. BEVACIZUMAB (RHUMAB VEGF) [Suspect]
     Dosage: 800 MG
  3. PLETAL [Concomitant]
  4. VICODIN [Concomitant]
  5. ALPRAZOLAM [Concomitant]
  6. COUMADIN [Concomitant]
  7. MUCINEX DM [Concomitant]
  8. OMEPRAZOLE [Concomitant]
  9. TYLENOL #3 WITH CODEINE [Concomitant]
  10. ZOCOR [Concomitant]
  11. VIT B12 [Concomitant]
  12. ONDANSETRON [Concomitant]
  13. COMBIVENT [Concomitant]
  14. ENSURE PLUS [Concomitant]
  15. FOLIC ACID [Concomitant]
  16. NICODERM [Concomitant]
  17. SPRIVA [Concomitant]
  18. PEMETREXED [Suspect]
     Dosage: 800 MG
  19. ADVAIR DISKUS 100/50 [Concomitant]
  20. ALBUTEROL [Concomitant]
  21. DECADRON [Concomitant]
  22. FLONASE [Concomitant]

REACTIONS (2)
  - HAEMORRHAGE [None]
  - SUDDEN DEATH [None]
